FAERS Safety Report 9785259 (Version 1)
Quarter: 2013Q4

REPORT INFORMATION
  Report Type: Spontaneous
  Country: US (occurrence: None)
  Receive Date: 20131226
  Receipt Date: 20131226
  Transmission Date: 20140711
  Serious: Yes (Death)
  Sender: FDA-Public Use
  Company Number: None

PATIENT
  Sex: 0

DRUGS (8)
  1. QUETIAPINE [Suspect]
     Indication: BIPOLAR DISORDER
     Dosage: CHRONIC
     Route: 048
  2. QUETIAPINE [Suspect]
     Dosage: CHRONIC
     Route: 048
  3. QUETIAPINE [Suspect]
     Dosage: CHRONIC
     Route: 048
  4. LORAZEPAM [Concomitant]
  5. DICLEGIS [Concomitant]
  6. PRENATAL MULTIVITAMIN [Concomitant]
  7. PROMETHAZINE [Concomitant]
  8. TUMS [Concomitant]

REACTIONS (4)
  - Foetal death [None]
  - Maternal drugs affecting foetus [None]
  - Hydrothorax [None]
  - Foetal disorder [None]
